FAERS Safety Report 17926560 (Version 13)
Quarter: 2021Q2

REPORT INFORMATION
  Report Type: Report from Study
  Country: BR (occurrence: BR)
  Receive Date: 20200622
  Receipt Date: 20210609
  Transmission Date: 20210717
  Serious: Yes (Life-Threatening, Hospitalization, Other)
  Sender: FDA-Public Use
  Company Number: NVSC2019BR072462

PATIENT
  Age: 66 Year
  Sex: Female
  Weight: 56 kg

DRUGS (24)
  1. ANASTROZOLE. [Suspect]
     Active Substance: ANASTROZOLE
     Indication: PRODUCT USED FOR UNKNOWN INDICATION
     Dosage: UNK
     Route: 065
  2. FULVESTRANT. [Concomitant]
     Active Substance: FULVESTRANT
     Indication: BREAST CANCER METASTATIC
     Dosage: UNK, QMO (EVERY 28 DAYS)
     Route: 065
     Dates: start: 201907
  3. KISQALI [Suspect]
     Active Substance: RIBOCICLIB
     Dosage: 3 DF
     Route: 065
  4. KISQALI [Suspect]
     Active Substance: RIBOCICLIB
     Dosage: UNK
     Route: 065
  5. KISQALI [Suspect]
     Active Substance: RIBOCICLIB
     Dosage: 200 MG, QD
     Route: 065
  6. KISQALI [Suspect]
     Active Substance: RIBOCICLIB
     Dosage: 3 DF, Q3W, (USE FOR EVERY 21 DAYS)
     Route: 065
     Dates: start: 201911
  7. KISQALI [Suspect]
     Active Substance: RIBOCICLIB
     Dosage: 3 DF (3 TABLETS)
     Route: 065
     Dates: start: 201911, end: 202103
  8. KISQALI [Suspect]
     Active Substance: RIBOCICLIB
     Indication: BREAST NEOPLASM
     Dosage: 200 MG, QD
     Route: 065
  9. KISQALI [Suspect]
     Active Substance: RIBOCICLIB
     Dosage: 400 MG, QD
     Route: 065
  10. KISQALI [Suspect]
     Active Substance: RIBOCICLIB
     Dosage: 2 DF, CYCLIC (CYCLE OF 21 DAYS) (2 TABLETS)
     Route: 065
     Dates: start: 20210418
  11. KISQALI [Suspect]
     Active Substance: RIBOCICLIB
     Dosage: UNK
     Route: 065
  12. KISQALI [Suspect]
     Active Substance: RIBOCICLIB
     Dosage: 600 MG, CYCLIC (CYCLE OF 21 DAYS) (3 TABLETS, STOPPED AFTER 1 MONTHS AND A HALF FROM THE START DATE)
     Route: 065
     Dates: start: 20191106, end: 201912
  13. KISQALI [Suspect]
     Active Substance: RIBOCICLIB
     Dosage: 2 DF
     Route: 048
     Dates: start: 201911
  14. KISQALI [Suspect]
     Active Substance: RIBOCICLIB
     Dosage: 1 DF (CYCLE OF 21 DAYS)
     Route: 065
  15. KISQALI [Suspect]
     Active Substance: RIBOCICLIB
     Dosage: 2 DF, CYCLIC (CYCLE OF 21 DAYS) (2 TABLETS)
     Route: 065
  16. DENOSUMAB [Concomitant]
     Active Substance: DENOSUMAB
     Indication: BONE DISORDER
     Dosage: UNK
     Route: 065
  17. KISQALI [Suspect]
     Active Substance: RIBOCICLIB
     Dosage: UNK
     Route: 065
     Dates: start: 20191106
  18. KISQALI [Suspect]
     Active Substance: RIBOCICLIB
     Dosage: 2 DF, Q3W, (USE FOR EVERY 21 DAYS)
     Route: 065
     Dates: start: 201911
  19. KISQALI [Suspect]
     Active Substance: RIBOCICLIB
     Dosage: UNK UNK, Q3W, (USE FOR EVERY 21 DAYS)
     Route: 065
  20. KISQALI [Suspect]
     Active Substance: RIBOCICLIB
     Dosage: 1 DF, CYCLIC (1 TABLET, STOPPED AFTER 3 MONTHS AND A HALF FROM THE START DATE)
     Route: 065
  21. FASLODEX [Concomitant]
     Active Substance: FULVESTRANT
     Indication: PRODUCT USED FOR UNKNOWN INDICATION
     Dosage: UNK
     Route: 065
  22. KISQALI [Suspect]
     Active Substance: RIBOCICLIB
     Indication: BREAST CANCER METASTATIC
     Dosage: UNK
     Route: 065
  23. KISQALI [Suspect]
     Active Substance: RIBOCICLIB
     Dosage: 400 MG
     Route: 065
  24. LETROZOLE. [Suspect]
     Active Substance: LETROZOLE
     Indication: BREAST CANCER METASTATIC
     Dosage: UNK
     Route: 065
     Dates: start: 2017

REACTIONS (58)
  - Glossodynia [Not Recovered/Not Resolved]
  - Swelling [Recovered/Resolved]
  - Tongue disorder [Recovered/Resolved]
  - Pain of skin [Unknown]
  - Tachycardia [Recovered/Resolved]
  - Malaise [Unknown]
  - Tongue injury [Recovered/Resolved]
  - Treatment failure [Unknown]
  - Tongue discomfort [Not Recovered/Not Resolved]
  - Osteoporosis [Unknown]
  - Wound [Recovered/Resolved]
  - Skin disorder [Recovered/Resolved]
  - Glossitis [Recovered/Resolved]
  - Oral contusion [Recovering/Resolving]
  - Pruritus [Recovering/Resolving]
  - Dry mouth [Recovering/Resolving]
  - Tongue disorder [Recovered/Resolved]
  - Tongue erythema [Recovered/Resolved]
  - Oral administration complication [Recovered/Resolved]
  - Spinal pain [Recovered/Resolved]
  - Hair colour changes [Not Recovered/Not Resolved]
  - Product dose omission issue [Unknown]
  - Urticaria [Recovered/Resolved]
  - Tongue discolouration [Recovered/Resolved]
  - Plicated tongue [Not Recovered/Not Resolved]
  - Oropharyngeal pain [Unknown]
  - Metastasis [Unknown]
  - Bone loss [Unknown]
  - Tongue injury [Recovered/Resolved]
  - Glossodynia [Recovered/Resolved]
  - Swelling [Recovered/Resolved]
  - Pain in extremity [Not Recovered/Not Resolved]
  - Arthralgia [Not Recovered/Not Resolved]
  - Rash macular [Recovered/Resolved]
  - Asthenia [Recovering/Resolving]
  - Pain [Recovering/Resolving]
  - Decreased activity [Unknown]
  - Adverse drug reaction [Unknown]
  - Skin plaque [Recovered/Resolved]
  - Tongue injury [Recovered/Resolved]
  - Pain of skin [Recovered/Resolved]
  - Sensitive skin [Unknown]
  - Skin irritation [Recovered/Resolved]
  - Oral administration complication [Recovered/Resolved]
  - Glossodynia [Recovered/Resolved]
  - Erythema [Recovered/Resolved]
  - Discomfort [Not Recovered/Not Resolved]
  - Mass [Unknown]
  - Fatigue [Recovered/Resolved]
  - Oedema [Recovered/Resolved]
  - Thrombosis [Unknown]
  - Oral contusion [Recovered/Resolved]
  - Neck pain [Recovered/Resolved]
  - Headache [Recovered/Resolved]
  - Weight decreased [Not Recovered/Not Resolved]
  - Alopecia [Unknown]
  - Rib fracture [Recovered/Resolved]
  - Rib fracture [Not Recovered/Not Resolved]

NARRATIVE: CASE EVENT DATE: 2017
